FAERS Safety Report 20890971 (Version 1)
Quarter: 2022Q2

REPORT INFORMATION
  Report Type: Spontaneous
  Country: US (occurrence: US)
  Receive Date: 20220530
  Receipt Date: 20220530
  Transmission Date: 20220721
  Serious: No
  Sender: FDA-Public Use
  Company Number: US-BRISTOL-MYERS SQUIBB COMPANY-2022-033999

PATIENT
  Age: 51 Year
  Sex: Male
  Weight: 134.26 kg

DRUGS (1)
  1. REVLIMID [Suspect]
     Active Substance: LENALIDOMIDE
     Indication: B-cell lymphoma
     Dosage: 1 WEEK OFF
     Dates: start: 20211101

REACTIONS (2)
  - Dry skin [Unknown]
  - Intentional product use issue [Unknown]
